FAERS Safety Report 25077606 (Version 1)
Quarter: 2025Q1

REPORT INFORMATION
  Report Type: Report from Study
  Country: DE (occurrence: DE)
  Receive Date: 20250314
  Receipt Date: 20250314
  Transmission Date: 20250408
  Serious: Yes (Hospitalization, Other)
  Sender: NORDIC PHARMA
  Company Number: DE-SAMSUNG BIOEPIS-SB-2021-04964

PATIENT
  Age: 53 Year
  Sex: Female

DRUGS (17)
  1. METHOTREXATE SODIUM [Suspect]
     Active Substance: METHOTREXATE SODIUM
     Indication: Rheumatoid arthritis
     Route: 050
     Dates: start: 20180625
  2. METHOTREXATE SODIUM [Suspect]
     Active Substance: METHOTREXATE SODIUM
     Indication: Rheumatoid arthritis
     Route: 050
     Dates: start: 20160916
  3. METHOTREXATE SODIUM [Suspect]
     Active Substance: METHOTREXATE SODIUM
     Indication: Rheumatoid arthritis
     Route: 050
     Dates: start: 20170117
  4. METHOTREXATE SODIUM [Suspect]
     Active Substance: METHOTREXATE SODIUM
     Indication: Rheumatoid arthritis
     Route: 050
     Dates: start: 20170519
  5. METHOTREXATE SODIUM [Suspect]
     Active Substance: METHOTREXATE SODIUM
     Indication: Rheumatoid arthritis
     Route: 050
     Dates: start: 20171128
  6. METHOTREXATE SODIUM [Suspect]
     Active Substance: METHOTREXATE SODIUM
     Indication: Rheumatoid arthritis
     Route: 050
     Dates: start: 20181130
  7. METHOTREXATE SODIUM [Suspect]
     Active Substance: METHOTREXATE SODIUM
     Indication: Rheumatoid arthritis
     Route: 050
     Dates: start: 20190618
  8. METHOTREXATE SODIUM [Suspect]
     Active Substance: METHOTREXATE SODIUM
     Indication: Rheumatoid arthritis
     Route: 050
     Dates: start: 20191205
  9. METHOTREXATE SODIUM [Suspect]
     Active Substance: METHOTREXATE SODIUM
     Indication: Rheumatoid arthritis
     Route: 050
     Dates: start: 20200604
  10. METHOTREXATE SODIUM [Suspect]
     Active Substance: METHOTREXATE SODIUM
     Indication: Rheumatoid arthritis
     Route: 050
     Dates: start: 20210105
  11. ERELZI [Concomitant]
     Active Substance: ETANERCEPT-SZZS
     Indication: Rheumatoid arthritis
     Route: 050
     Dates: start: 201905, end: 201909
  12. HUMIRA [Concomitant]
     Active Substance: ADALIMUMAB
     Indication: Rheumatoid arthritis
     Route: 050
     Dates: start: 201606, end: 201812
  13. IMRALDI [Concomitant]
     Active Substance: ADALIMUMAB
     Indication: Rheumatoid arthritis
     Route: 050
     Dates: start: 201812, end: 201905
  14. Sulfasalazine [SULFASALAZINE] [Concomitant]
     Indication: Rheumatoid arthritis
     Dates: start: 20160623
  15. Sulfasalazine [SULFASALAZINE] [Concomitant]
     Indication: Rheumatoid arthritis
     Dates: start: 20160916
  16. HYDROXYCHLOROQUINE [Concomitant]
     Active Substance: HYDROXYCHLOROQUINE
     Indication: Rheumatoid arthritis
     Dates: start: 20160623
  17. HYDROXYCHLOROQUINE [Concomitant]
     Active Substance: HYDROXYCHLOROQUINE
     Indication: Rheumatoid arthritis
     Dates: start: 20160916

REACTIONS (10)
  - Osteoarthritis [Unknown]
  - Pulmonary mass [Not Recovered/Not Resolved]
  - Hidradenitis [Unknown]
  - Dyspnoea [Unknown]
  - Abscess [Not Recovered/Not Resolved]
  - Diarrhoea [Recovered/Resolved]
  - Breast abscess [Not Recovered/Not Resolved]
  - Chronic obstructive pulmonary disease [Unknown]
  - Pneumonia [Unknown]
  - Genital abscess [Not Recovered/Not Resolved]

NARRATIVE: CASE EVENT DATE: 20191123
